FAERS Safety Report 9576871 (Version 1)
Quarter: 2013Q4

REPORT INFORMATION
  Report Type: Spontaneous
  Country: US (occurrence: US)
  Receive Date: 20131001
  Receipt Date: 20131001
  Transmission Date: 20140711
  Serious: No
  Sender: FDA-Public Use
  Company Number: US-AMGEN-USASP2013004818

PATIENT
  Age: 54 Year
  Sex: Female
  Weight: 54.42 kg

DRUGS (7)
  1. ENBREL [Suspect]
     Indication: PRODUCT USED FOR UNKNOWN INDICATION
     Dosage: 50 MG, QWK
     Route: 058
  2. VITAMIN D                          /00107901/ [Concomitant]
     Dosage: 2000 UNIT, UNK
  3. FISH OIL [Concomitant]
     Dosage: UNK
  4. CALCIUM                            /00060701/ [Concomitant]
     Dosage: 500 UNK, UNK
  5. MULTIVITAMINS, PLAIN [Concomitant]
     Dosage: UNK
  6. IRON [Concomitant]
     Dosage: UNK
  7. GINKGO BILOBA [Concomitant]
     Dosage: 60 MG, UNK

REACTIONS (3)
  - Hot flush [Unknown]
  - Joint stiffness [Unknown]
  - Rhinorrhoea [Unknown]
